FAERS Safety Report 7973688-6 (Version None)
Quarter: 2011Q4

REPORT INFORMATION
  Report Type: 
  Country: None (occurrence: None)
  Receive Date: 20111213
  Receipt Date: 20111208
  Transmission Date: 20120403
  Serious: Yes (Other)
  Sender: FDA-Public Use
  Company Number: AT-ROCHE-1007312

PATIENT
  Age: 68 Year
  Sex: Male
  Weight: 65 kg

DRUGS (3)
  1. GEMCITABINE [Suspect]
     Indication: BRONCHIAL CARCINOMA
     Dosage: DRUG NAME REPORTED AS GEMSOL
     Route: 065
     Dates: start: 20110908
  2. AVASTIN [Suspect]
     Indication: BRONCHIAL CARCINOMA
     Route: 065
     Dates: start: 20110908
  3. CISPLATIN [Suspect]
     Indication: PRODUCT USED FOR UNKNOWN INDICATION
     Dosage: DRUG NAME REPORTED AS CISPLATIN SANDOZ
     Route: 065
     Dates: start: 20110908

REACTIONS (2)
  - PRURITUS GENERALISED [None]
  - RASH [None]
